FAERS Safety Report 4399995-4 (Version None)
Quarter: 2004Q3

REPORT INFORMATION
  Report Type: 
  Country: None (occurrence: None)
  Receive Date: 20040714
  Receipt Date: 20040706
  Transmission Date: 20050211
  Serious: Yes (Other)
  Sender: FDA-Public Use
  Company Number: 2004-07-0085

PATIENT
  Age: 30 Year
  Sex: Female
  Weight: 70 kg

DRUGS (3)
  1. AERIUS (DESLORATADINE) TABLETS    'LIKE CLARINEX' [Suspect]
     Indication: SUICIDE ATTEMPT
     Dosage: 100 MG PO ORAL
     Route: 048
     Dates: start: 20040705, end: 20040705
  2. DIAZEPAM [Suspect]
     Indication: SUICIDE ATTEMPT
     Dosage: 70 MG PO ORAL
     Route: 048
     Dates: start: 20040705, end: 20040705
  3. LORATADINE [Suspect]
     Indication: SUICIDE ATTEMPT
     Dosage: ORAL
     Route: 048

REACTIONS (2)
  - NAUSEA [None]
  - SUICIDE ATTEMPT [None]
